FAERS Safety Report 6437306-0 (Version None)
Quarter: 2009Q4

REPORT INFORMATION
  Report Type: 
  Country: None (occurrence: None)
  Receive Date: 20091112
  Receipt Date: 20091105
  Transmission Date: 20100525
  Serious: Yes (Other)
  Sender: FDA-Public Use
  Company Number: BG-ROCHE-667334

PATIENT
  Sex: Female

DRUGS (4)
  1. BONIVA [Suspect]
     Indication: OSTEOPOROSIS
     Dosage: DOSE REPORTED AS 3 MG/ 3 ML
     Route: 042
     Dates: start: 20090305, end: 20090305
  2. BONIVA [Suspect]
     Dosage: DOSE REPORTED AS 3 MG/ 3 ML
     Route: 042
     Dates: start: 20090602, end: 20090602
  3. BONIVA [Suspect]
     Dosage: DOSE REPORTED AS 3 MG/ 3 ML
     Route: 042
     Dates: start: 20090828, end: 20090828
  4. RUTASCORBIN [Concomitant]

REACTIONS (1)
  - GASTROINTESTINAL HAEMORRHAGE [None]
